FAERS Safety Report 17227251 (Version 4)
Quarter: 2020Q2

REPORT INFORMATION
  Report Type: Spontaneous
  Country: US (occurrence: US)
  Receive Date: 20200103
  Receipt Date: 20200406
  Transmission Date: 20200713
  Serious: Yes (Hospitalization, Other)
  Sender: FDA-Public Use
  Company Number: US-009507513-1810USA003659

PATIENT
  Sex: Male
  Weight: 95.24 kg

DRUGS (3)
  1. ZOSTAVAX [Suspect]
     Active Substance: VARICELLA-ZOSTER VIRUS STRAIN OKA/MERCK LIVE ANTIGEN
     Indication: PROPHYLAXIS
     Dosage: 1 DOSAGE FORM
     Route: 065
     Dates: start: 20131014
  2. INFLUENZA VIRUS VACCINE (UNSPECIFIED) [Suspect]
     Active Substance: INFLUENZA VIRUS VACCINE
     Indication: PROPHYLAXIS
     Dosage: UNK
     Dates: start: 2019
  3. PRINIVIL [Suspect]
     Active Substance: LISINOPRIL
     Indication: HYPERTENSION
     Dosage: UNK
     Route: 048
     Dates: start: 2016

REACTIONS (25)
  - Abdominal discomfort [Unknown]
  - Angina pectoris [Unknown]
  - Chronic obstructive pulmonary disease [Unknown]
  - Constipation [Unknown]
  - Histoplasmosis [Unknown]
  - Hyperkalaemia [Unknown]
  - Vaccination failure [Unknown]
  - Hypertension [Unknown]
  - Paraesthesia [Unknown]
  - Fluid retention [Unknown]
  - Cough [Unknown]
  - Blood urea increased [Unknown]
  - Chest pain [Unknown]
  - Peripheral swelling [Unknown]
  - Herpes zoster [Recovering/Resolving]
  - Oedema peripheral [Unknown]
  - Blood urea nitrogen/creatinine ratio increased [Unknown]
  - Influenza [Unknown]
  - Ophthalmic herpes zoster [Unknown]
  - Dyspepsia [Unknown]
  - Overweight [Unknown]
  - Blood glucose increased [Unknown]
  - Hypersensitivity [Unknown]
  - Pneumonia [Unknown]
  - Cardiac failure [Unknown]

NARRATIVE: CASE EVENT DATE: 2016
